FAERS Safety Report 14567382 (Version 1)
Quarter: 2018Q1

REPORT INFORMATION
  Report Type: Report from Study
  Country: NL (occurrence: NL)
  Receive Date: 20180223
  Receipt Date: 20180223
  Transmission Date: 20180509
  Serious: Yes (Other)
  Sender: FDA-Public Use
  Company Number: NL-TEVA-2018-NL-861859

PATIENT
  Age: 44 Year
  Sex: Female

DRUGS (8)
  1. COPAXONE [Suspect]
     Active Substance: GLATIRAMER ACETATE
     Indication: MULTIPLE SCLEROSIS
     Dosage: 40 MG/ML
     Route: 058
     Dates: start: 20180125
  2. LOSARTAN 100/12,5 MG [Concomitant]
     Dosage: 1 DOSAGE FORMS DAILY; 1 DOSAGE FORM= 100MG LOSARTAN + 12.5MG UNSPECIFIED ACTIVE INGREDIENT
  3. VITAMIN C [Concomitant]
     Active Substance: ASCORBIC ACID
  4. MAXALT 10 MG [Concomitant]
  5. LERCANIDIPINE 10 MG [Concomitant]
     Dosage: 10 MILLIGRAM DAILY;
  6. VITAMIN D [Concomitant]
     Active Substance: CHOLECALCIFEROL
  7. SPIRONOLACTON 12,5 MG [Concomitant]
     Dosage: 12.5 MILLIGRAM DAILY;
  8. VITAMIN B [Concomitant]
     Active Substance: VITAMIN B

REACTIONS (1)
  - Respiratory tract infection [Not Recovered/Not Resolved]

NARRATIVE: CASE EVENT DATE: 20180209
